FAERS Safety Report 6609537-8 (Version None)
Quarter: 2010Q1

REPORT INFORMATION
  Report Type: 
  Country: None (occurrence: None)
  Receive Date: 20100302
  Receipt Date: 20100217
  Transmission Date: 20100710
  Serious: Yes (Other)
  Sender: FDA-Public Use
  Company Number: US-SOLVAY-00210001041

PATIENT
  Age: 657 Month
  Sex: Male
  Weight: 82.272 kg

DRUGS (11)
  1. AMBIEN [Concomitant]
     Indication: SLEEP DISORDER
     Dosage: DAILY DOSE: 10 MILLIGRAM(S)
     Route: 065
  2. ANDROGEL [Suspect]
     Indication: DRUG USE FOR UNKNOWN INDICATION
     Dosage: DAILY DOSE:  UNKNOWN
     Route: 062
     Dates: start: 20060701, end: 20070601
  3. LORAZEPAM [Concomitant]
     Indication: MOOD SWINGS
     Dosage: DAILY DOSE: 1 MILLIGRAM(S)
     Route: 065
  4. TESTIM [Suspect]
     Indication: ANDROGEN DEFICIENCY
     Dosage: DAILY DOSE: 50 MILLIGRAM(S), ROUTE: TRANSDERMAL
     Route: 050
     Dates: start: 20070601
  5. ACIPHEX [Concomitant]
     Indication: GASTROOESOPHAGEAL REFLUX DISEASE
     Dosage: DAILY DOSE: 20 MILLIGRAM(S)
     Route: 065
  6. RADIATION THERAPY [Suspect]
     Indication: NEOPLASM MALIGNANT
     Dosage: DAILY DOSE:  UNKNOWN
     Route: 065
     Dates: start: 20060701
  7. MICARDIS [Concomitant]
     Indication: HYPERTENSION
     Dosage: DAILY DOSE: 80 MILLIGRAM(S)
     Route: 065
  8. LAMICTAL [Concomitant]
     Indication: MOOD SWINGS
     Dosage: DAILY DOSE: 200 MILLIGRAM(S)
     Route: 065
  9. PRAVACHOL [Concomitant]
     Indication: BLOOD CHOLESTEROL INCREASED
     Dosage: DAILY DOSE: 40 MILLIGRAM(S)
     Route: 065
  10. SYNTHROID [Concomitant]
     Indication: THYROIDECTOMY
     Dosage: DAILY DOSE: 150 MICROGRAM(S)
     Route: 065
  11. COMBIGAN EYE DROP [Concomitant]
     Indication: GLAUCOMA
     Dosage: DAILY DOSE:  UNKNOWN, OPTHALMIC
     Route: 065

REACTIONS (3)
  - CARTILAGE ATROPHY [None]
  - EXOSTOSIS [None]
  - TENDON INJURY [None]
